FAERS Safety Report 5371376-6 (Version None)
Quarter: 2007Q2

REPORT INFORMATION
  Report Type: 
  Country: None (occurrence: None)
  Receive Date: 20070615
  Receipt Date: 20061002
  Transmission Date: 20071010
  Serious: Yes (Other)
  Sender: FDA-Public Use
  Company Number: 200614694US

PATIENT
  Age: 52 Year
  Sex: Female

DRUGS (6)
  1. LANTUS [Suspect]
     Indication: DIABETES MELLITUS NON-INSULIN-DEPENDENT
     Dosage: 10 U QAM INJ
     Dates: start: 20060522, end: 20060524
  2. LANTUS [Suspect]
     Indication: DIABETES MELLITUS NON-INSULIN-DEPENDENT
     Dosage: 12 U QAM INJ
     Dates: start: 20060525
  3. METFORMIN HYDROCHLORIDE [Concomitant]
  4. AMARYL [Concomitant]
  5. HYDROCHLOROTHIAZIDE [Concomitant]
  6. OPTICLIK [Suspect]
     Indication: DIABETES MELLITUS NON-INSULIN-DEPENDENT
     Dates: start: 20060522

REACTIONS (1)
  - HYPERGLYCAEMIA [None]
